FAERS Safety Report 20208581 (Version 3)
Quarter: 2022Q1

REPORT INFORMATION
  Report Type: Report from Study
  Country: US (occurrence: US)
  Receive Date: 20211220
  Receipt Date: 20220210
  Transmission Date: 20220423
  Serious: Yes (Death, Hospitalization)
  Sender: FDA-Public Use
  Company Number: US-CELGENE-USA-20211205207

PATIENT
  Age: 86 Year
  Sex: Male

DRUGS (1)
  1. IDHIFA [Suspect]
     Active Substance: ENASIDENIB MESYLATE
     Indication: Acute myeloid leukaemia
     Dosage: 50 MILLIGRAM
     Route: 048
     Dates: start: 20151020, end: 20211112

REACTIONS (4)
  - Acute kidney injury [Fatal]
  - Dehydration [Recovering/Resolving]
  - Cystitis [Not Recovered/Not Resolved]
  - Urinary retention [Recovering/Resolving]

NARRATIVE: CASE EVENT DATE: 20210211
